FAERS Safety Report 16539918 (Version 1)
Quarter: 2019Q3

REPORT INFORMATION
  Report Type: Spontaneous
  Country: US (occurrence: US)
  Receive Date: 20190706
  Receipt Date: 20190706
  Transmission Date: 20191004
  Serious: Yes (Other)
  Sender: FDA-Public Use
  Company Number: None

PATIENT
  Age: 28 Year
  Sex: Female
  Weight: 51.75 kg

DRUGS (5)
  1. IBUPROFEN. [Concomitant]
     Active Substance: IBUPROFEN
  2. MIRENA 5 YR IUD [Concomitant]
  3. BENTYL [Concomitant]
     Active Substance: DICYCLOMINE HYDROCHLORIDE
  4. HYDROXYZINE HCL [Suspect]
     Active Substance: HYDROXYZINE HYDROCHLORIDE
     Indication: ANXIETY
     Dosage: ?          QUANTITY:1 TABLET(S);?
     Route: 048
     Dates: start: 20190702, end: 20190705
  5. ATIVAN [Concomitant]
     Active Substance: LORAZEPAM

REACTIONS (6)
  - Tremor [None]
  - Panic attack [None]
  - Insomnia [None]
  - Anxiety [None]
  - Euphoric mood [None]
  - Abdominal discomfort [None]

NARRATIVE: CASE EVENT DATE: 20190705
